FAERS Safety Report 13082128 (Version 2)
Quarter: 2017Q3

REPORT INFORMATION
  Report Type: Spontaneous
  Country: US (occurrence: US)
  Receive Date: 20170103
  Receipt Date: 20170814
  Transmission Date: 20171127
  Serious: No
  Sender: FDA-Public Use
  Company Number: US-PFIZER INC-2017001025

PATIENT
  Age: 58 Year
  Sex: Female
  Weight: 81.65 kg

DRUGS (6)
  1. XELJANZ [Suspect]
     Active Substance: TOFACITINIB CITRATE
     Indication: VITILIGO
     Dosage: 10 MG, 1X/DAY
     Route: 048
     Dates: start: 2016, end: 201706
  2. XELJANZ [Suspect]
     Active Substance: TOFACITINIB CITRATE
     Dosage: 5 MG, 2X/DAY
     Route: 048
     Dates: start: 201706, end: 20170615
  3. VALACICLOVIR [Concomitant]
     Active Substance: VALACYCLOVIR HYDROCHLORIDE
     Indication: HERPES DERMATITIS
     Dosage: 1 G, 1X/DAY
  4. XANAX [Concomitant]
     Active Substance: ALPRAZOLAM
     Indication: ANXIETY
     Dosage: 5 MG, 1X/DAY (AT NIGHT)
  5. CRESTOR [Concomitant]
     Active Substance: ROSUVASTATIN CALCIUM
     Indication: BLOOD CHOLESTEROL
     Dosage: 40 MG, 1X/DAY
  6. PROZAC [Concomitant]
     Active Substance: FLUOXETINE HYDROCHLORIDE
     Indication: DEPRESSION
     Dosage: 20 MG, 1X/DAY

REACTIONS (20)
  - Sinusitis [Recovering/Resolving]
  - Bronchitis chronic [Unknown]
  - Bronchitis [Recovered/Resolved]
  - Abdominal neoplasm [Recovered/Resolved]
  - Myalgia [Recovering/Resolving]
  - Oesophageal pain [Recovering/Resolving]
  - Muscular weakness [Recovering/Resolving]
  - Muscle spasms [Recovered/Resolved]
  - Arthralgia [Recovering/Resolving]
  - Helicobacter test positive [Unknown]
  - Arthropathy [Recovering/Resolving]
  - Abdominal pain upper [Recovering/Resolving]
  - Drug ineffective for unapproved indication [Unknown]
  - Skin depigmentation [Unknown]
  - Hepatic steatosis [Unknown]
  - Malaise [Unknown]
  - Immune system disorder [Unknown]
  - Balance disorder [Recovering/Resolving]
  - Oesophageal neoplasm [Recovered/Resolved]
  - Oesophageal disorder [Unknown]

NARRATIVE: CASE EVENT DATE: 201611
